FAERS Safety Report 8934982 (Version 3)
Quarter: 2012Q4

REPORT INFORMATION
  Report Type: 
  Country: US (occurrence: US)
  Receive Date: 20121129
  Receipt Date: 20121219
  Transmission Date: 20130627
  Serious: Yes (Hospitalization, Other)
  Sender: FDA-Public Use
  Company Number: US-PFIZER INC-2012297412

PATIENT
  Age: 21 Year
  Sex: Female

DRUGS (3)
  1. LEVOFLOXACIN [Suspect]
     Dosage: UNK
     Route: 065
  2. VANCOMYCIN HCL [Suspect]
     Dosage: UNK
     Route: 042
  3. METRONIDAZOLE [Suspect]
     Dosage: UNK
     Route: 065

REACTIONS (8)
  - Drug reaction with eosinophilia and systemic symptoms [Recovered/Resolved]
  - Hepatomegaly [Recovered/Resolved]
  - Rash maculo-papular [Recovered/Resolved]
  - Pyrexia [Recovered/Resolved]
  - Lymphadenopathy [Recovered/Resolved]
  - Eosinophilia [Recovered/Resolved]
  - Liver function test abnormal [Recovered/Resolved]
  - Abdominal pain [Recovered/Resolved]
